FAERS Safety Report 13030232 (Version 1)
Quarter: 2016Q4

REPORT INFORMATION
  Report Type: Report from Study
  Country: JP (occurrence: JP)
  Receive Date: 20161215
  Receipt Date: 20161215
  Transmission Date: 20170207
  Serious: Yes (Death)
  Sender: FDA-Public Use
  Company Number: JP-BIOGEN-A201500030

PATIENT
  Age: 48 Year
  Sex: Male
  Weight: 68 kg

DRUGS (9)
  1. VANCOMYCIN [Concomitant]
     Active Substance: VANCOMYCIN
     Indication: STAPHYLOCOCCAL INFECTION
     Route: 042
     Dates: start: 20080108
  2. CARBENIN [Concomitant]
     Active Substance: BETAMIPRON\PANIPENEM
     Indication: DEVICE RELATED INFECTION
     Route: 042
     Dates: start: 20071230
  3. M.V.I.-9(NEO) [Concomitant]
     Indication: NUTRITIONAL SUPPLEMENTATION
     Route: 042
  4. AVONEX [Suspect]
     Active Substance: INTERFERON BETA-1A
     Indication: RELAPSING-REMITTING MULTIPLE SCLEROSIS
     Route: 030
     Dates: start: 20080103
  5. M.V.I.-3 [Concomitant]
     Indication: NUTRITIONAL SUPPLEMENTATION
     Route: 042
  6. INTRALIPOS [Concomitant]
     Active Substance: SOYBEAN OIL
     Indication: NUTRITIONAL SUPPLEMENTATION
     Route: 042
  7. P N TWIN [Concomitant]
     Indication: NUTRITIONAL SUPPLEMENTATION
     Route: 042
  8. GASTER [Concomitant]
     Active Substance: FAMOTIDINE
     Indication: NUTRITIONAL SUPPLEMENTATION
     Route: 042
  9. HUMULIN R [Concomitant]
     Active Substance: INSULIN HUMAN
     Indication: NUTRITIONAL SUPPLEMENTATION
     Route: 042

REACTIONS (1)
  - Death [Fatal]

NARRATIVE: CASE EVENT DATE: 20120301
